FAERS Safety Report 5092268-6 (Version None)
Quarter: 2006Q3

REPORT INFORMATION
  Report Type: 
  Country: None (occurrence: None)
  Receive Date: 20060825
  Receipt Date: 20060807
  Transmission Date: 20061208
  Serious: Yes (Hospitalization, Other)
  Sender: FDA-Public Use
  Company Number: US200608001384

PATIENT
  Age: 63 Year
  Sex: Male

DRUGS (6)
  1. CECLOR [Suspect]
     Indication: NAIL INFECTION
     Dosage: ORAL
     Route: 048
     Dates: start: 20040817
  2. HYZAAR [Concomitant]
  3. CARDURA [Concomitant]
  4. ZANTAC [Concomitant]
  5. VANQUISH (ACETYLSALICYLIC ACID, ALUMINIUM HYDROXIDE GEL, DRIED, CAFFEI [Concomitant]
  6. SULINDAC [Concomitant]

REACTIONS (16)
  - ALCOHOL WITHDRAWAL SYNDROME [None]
  - CHEST DISCOMFORT [None]
  - DIALYSIS [None]
  - DIZZINESS [None]
  - HAEMATOCRIT DECREASED [None]
  - HAEMOGLOBIN DECREASED [None]
  - HAEMOLYTIC URAEMIC SYNDROME [None]
  - HYPERHIDROSIS [None]
  - NAUSEA [None]
  - PLATELET COUNT DECREASED [None]
  - PYREXIA [None]
  - RENAL FAILURE ACUTE [None]
  - RESPIRATORY FAILURE [None]
  - SYNCOPE [None]
  - THROMBOTIC THROMBOCYTOPENIC PURPURA [None]
  - VOMITING [None]
